FAERS Safety Report 9269026 (Version 1)
Quarter: 2013Q2

REPORT INFORMATION
  Report Type: Spontaneous
  Country: FR (occurrence: FR)
  Receive Date: 20130503
  Receipt Date: 20130503
  Transmission Date: 20140414
  Serious: Yes (Hospitalization)
  Sender: FDA-Public Use
  Company Number: FR-ROCHE-1220023

PATIENT
  Age: 82 Year
  Sex: Female

DRUGS (5)
  1. ROCEPHINE [Suspect]
     Indication: OSTEOMYELITIS
     Route: 042
     Dates: start: 20120906, end: 20121201
  2. LYRICA [Suspect]
     Indication: PAIN
     Route: 048
     Dates: start: 20120906, end: 20121205
  3. OXYCONTIN [Concomitant]
  4. OXYNORM [Concomitant]
  5. DALACINE [Concomitant]

REACTIONS (1)
  - Drug reaction with eosinophilia and systemic symptoms [Recovered/Resolved]
